FAERS Safety Report 5517928-1 (Version None)
Quarter: 2007Q4

REPORT INFORMATION
  Report Type: 
  Country: None (occurrence: None)
  Receive Date: 20071107
  Receipt Date: 20070423
  Transmission Date: 20080405
  Serious: Yes (Hospitalization)
  Sender: FDA-Public Use
  Company Number: WAES 0705USA00647

PATIENT
  Age: 65 Year
  Sex: Female

DRUGS (15)
  1. MEVACOR [Suspect]
     Dosage: PO
     Route: 048
     Dates: end: 20040410
  2. ALPHAGAN [Concomitant]
  3. AVANDIA [Concomitant]
  4. COSOPT [Concomitant]
  5. DETROL LA [Concomitant]
  6. DURAGESIC-100 [Concomitant]
  7. ELAVIL [Concomitant]
  8. LANTUS [Concomitant]
  9. LASIX [Concomitant]
  10. PLAVIX [Concomitant]
  11. REGLAN [Concomitant]
  12. TRICOR [Concomitant]
  13. CLONIDINE [Concomitant]
  14. INSULIN [Concomitant]
  15. POTASSIUM CHLORIDE [Concomitant]

REACTIONS (2)
  - MYALGIA [None]
  - MYOPATHY [None]
